FAERS Safety Report 5583456-0 (Version None)
Quarter: 2008Q1

REPORT INFORMATION
  Report Type: 
  Country: None (occurrence: None)
  Receive Date: 20080107
  Receipt Date: 20071226
  Transmission Date: 20080703
  Serious: Yes (Other)
  Sender: FDA-Public Use
  Company Number: US-AMGEN-US257513

PATIENT
  Sex: Male
  Weight: 87.5 kg

DRUGS (2)
  1. ENBREL [Suspect]
     Indication: PSORIASIS
     Route: 058
     Dates: start: 20061211
  2. LORAZEPAM [Concomitant]
     Route: 048

REACTIONS (1)
  - EYE DISORDER [None]
